FAERS Safety Report 7398020-0 (Version None)
Quarter: 2011Q2

REPORT INFORMATION
  Report Type: 
  Country: None (occurrence: None)
  Receive Date: 20110406
  Receipt Date: 20110404
  Transmission Date: 20111010
  Serious: Yes (Other)
  Sender: FDA-Public Use
  Company Number: JP-EISAI INC-E2020-08900-SPO-JP

PATIENT
  Age: 77 Year
  Sex: Male

DRUGS (3)
  1. ARICEPT [Suspect]
     Indication: DEMENTIA ALZHEIMER'S TYPE
     Route: 048
     Dates: start: 20100101, end: 20110317
  2. YOKU-KAN-SAN [Concomitant]
     Route: 048
  3. ROZEREM [Concomitant]
     Route: 048

REACTIONS (1)
  - PANCYTOPENIA [None]
